FAERS Safety Report 9720133 (Version 2)
Quarter: 2020Q3

REPORT INFORMATION
  Report Type: Report from Study
  Country: EC (occurrence: EC)
  Receive Date: 20131128
  Receipt Date: 20150819
  Transmission Date: 20201105
  Serious: Yes (Death)
  Sender: FDA-Public Use
  Company Number: EC-ROCHE-1309414

PATIENT
  Age: 86 Year
  Sex: Male

DRUGS (1)
  1. IBANDRONIC ACID. [Suspect]
     Active Substance: IBANDRONIC ACID
     Indication: OSTEOPOROSIS
     Route: 048
     Dates: start: 20080826, end: 20131103

REACTIONS (1)
  - Pain [Fatal]

NARRATIVE: CASE EVENT DATE: 201310
